FAERS Safety Report 9585490 (Version 1)
Quarter: 2013Q4

REPORT INFORMATION
  Report Type: Spontaneous
  Country: US (occurrence: US)
  Receive Date: 20131003
  Receipt Date: 20131003
  Transmission Date: 20140711
  Serious: No
  Sender: FDA-Public Use
  Company Number: US-B.I. PHARMACEUTICALS,INC./RIDGEFIELD-2013-BI-30026BP

PATIENT
  Sex: 0

DRUGS (1)
  1. JENTADUETO [Suspect]
     Indication: TYPE 2 DIABETES MELLITUS
     Dosage: STRENGTH: 2.5 MG / 1000 MG; DAILY DOSE: 7.5/3000
     Route: 048
     Dates: end: 2013

REACTIONS (1)
  - Overdose [Recovered/Resolved]
